FAERS Safety Report 8022520-3 (Version None)
Quarter: 2012Q1

REPORT INFORMATION
  Report Type: 
  Country: None (occurrence: None)
  Receive Date: 20120104
  Receipt Date: 20111221
  Transmission Date: 20120608
  Serious: Yes (Death, Hospitalization)
  Sender: FDA-Public Use
  Company Number: US-GLAXOSMITHKLINE-A0901290A

PATIENT
  Age: 56 Year
  Sex: Male
  Weight: 73.6 kg

DRUGS (5)
  1. CLONIDINE [Concomitant]
  2. AVANDIA [Suspect]
     Indication: DIABETES MELLITUS
     Dosage: 4MG PER DAY
     Route: 048
     Dates: start: 19990101
  3. LOTREL [Concomitant]
  4. AMARYL [Concomitant]
  5. PREVACID [Concomitant]

REACTIONS (6)
  - CARDIAC FAILURE CONGESTIVE [None]
  - CARDIOVASCULAR DISORDER [None]
  - PERIPHERAL VASCULAR DISORDER [None]
  - CARDIOMYOPATHY [None]
  - DEATH [None]
  - SENSORY LOSS [None]
